FAERS Safety Report 18594296 (Version 1)
Quarter: 2020Q4

REPORT INFORMATION
  Report Type: Report from Study
  Country: DE (occurrence: DE)
  Receive Date: 20201209
  Receipt Date: 20201209
  Transmission Date: 20210114
  Serious: Yes (Hospitalization)
  Sender: FDA-Public Use
  Company Number: DE-JNJFOC-20200510853

PATIENT
  Age: 6 Decade
  Sex: Male

DRUGS (2)
  1. SIMPONI [Suspect]
     Active Substance: GOLIMUMAB
     Indication: AXIAL SPONDYLOARTHRITIS
     Route: 058
     Dates: start: 20190418
  2. IBUPROFEN. [Concomitant]
     Active Substance: IBUPROFEN
     Dosage: 800 MG 5 DAYS A WEEK
     Route: 065
     Dates: start: 20160715, end: 20191215

REACTIONS (6)
  - Diarrhoea [Unknown]
  - Spinal osteoarthritis [Recovered/Resolved]
  - Injection site pruritus [Unknown]
  - Gastrointestinal infection [Unknown]
  - Osteoporosis [Unknown]
  - Hepatic enzyme increased [Unknown]

NARRATIVE: CASE EVENT DATE: 20190418
